FAERS Safety Report 19248910 (Version 2)
Quarter: 2021Q3

REPORT INFORMATION
  Report Type: Spontaneous
  Country: JP (occurrence: JP)
  Receive Date: 20210512
  Receipt Date: 20210706
  Transmission Date: 20211014
  Serious: Yes (Other)
  Sender: FDA-Public Use
  Company Number: JP-GLAXOSMITHKLINE-JP2021101647

PATIENT
  Sex: Female

DRUGS (1)
  1. ZEJULA [Suspect]
     Active Substance: NIRAPARIB
     Indication: PRODUCT USED FOR UNKNOWN INDICATION
     Dosage: 200 MILLIGRAM
     Route: 048
     Dates: start: 20210421, end: 20210428

REACTIONS (1)
  - Renal impairment [Unknown]

NARRATIVE: CASE EVENT DATE: 20210428
